FAERS Safety Report 16689657 (Version 1)
Quarter: 2019Q3

REPORT INFORMATION
  Report Type: Report from Study
  Country: US (occurrence: US)
  Receive Date: 20190809
  Receipt Date: 20190809
  Transmission Date: 20191004
  Serious: Yes (Other)
  Sender: FDA-Public Use
  Company Number: US-ACTELION-A-NJ2018-183879

PATIENT
  Age: 62 Year
  Sex: Female

DRUGS (24)
  1. INSULIN GLARGINE [Concomitant]
     Active Substance: INSULIN GLARGINE
     Dosage: 10 U SQ HS
     Route: 058
  2. OXYGEN. [Concomitant]
     Active Substance: OXYGEN
  3. ALPHAGAN P [Concomitant]
     Active Substance: BRIMONIDINE TARTRATE
  4. CRANBERRY CONCENTRATE [Concomitant]
     Active Substance: CRANBERRY CONCENTRATE
  5. AMLODIPINE [Concomitant]
     Active Substance: AMLODIPINE BESYLATE
     Dosage: 5 MG, TID
  6. INSULIN LISPRO [Concomitant]
     Active Substance: INSULIN LISPRO
     Dosage: 10 U SQ TID
     Route: 058
  7. POTASSIUM CHLORIDE. [Concomitant]
     Active Substance: POTASSIUM CHLORIDE
     Dosage: 20 MEQ, QD
  8. TRIAMCINOLONE [Concomitant]
     Active Substance: TRIAMCINOLONE
  9. VITAMIN D3 [Concomitant]
     Active Substance: CHOLECALCIFEROL
  10. BIOTIN [Concomitant]
     Active Substance: BIOTIN
  11. SILDENAFIL. [Concomitant]
     Active Substance: SILDENAFIL
     Dosage: 40 MG, TID
  12. ASPIRIN. [Concomitant]
     Active Substance: ASPIRIN
     Dosage: 81 MG, QD
  13. FUROSEMIDE. [Concomitant]
     Active Substance: FUROSEMIDE
     Dosage: 40 MG, QD
  14. GABAPENTIN. [Concomitant]
     Active Substance: GABAPENTIN
  15. PRED FORTE [Concomitant]
     Active Substance: PREDNISOLONE ACETATE
  16. ATORVASTATIN [Concomitant]
     Active Substance: ATORVASTATIN
     Dosage: 20 MG, QD
  17. METHAZOLAMIDE. [Concomitant]
     Active Substance: METHAZOLAMIDE
  18. LABETALOL [Concomitant]
     Active Substance: LABETALOL\LABETALOL HYDROCHLORIDE
  19. PANTOPRAZOLE [Concomitant]
     Active Substance: PANTOPRAZOLE
  20. OPSUMIT [Suspect]
     Active Substance: MACITENTAN
     Indication: PULMONARY HYPERTENSION
     Dosage: 10 MG, QD
     Route: 048
     Dates: start: 20181018, end: 201907
  21. COSOPT [Concomitant]
     Active Substance: DORZOLAMIDE HYDROCHLORIDE\TIMOLOL MALEATE
  22. LORAZEPAM. [Concomitant]
     Active Substance: LORAZEPAM
  23. XALATAN [Concomitant]
     Active Substance: LATANOPROST
  24. TYVASO [Concomitant]
     Active Substance: TREPROSTINIL

REACTIONS (4)
  - Facial paralysis [Unknown]
  - Dyspnoea [Unknown]
  - Peripheral nerve palsy [Unknown]
  - Drug ineffective for unapproved indication [Unknown]

NARRATIVE: CASE EVENT DATE: 201811
